FAERS Safety Report 9358776 (Version 1)
Quarter: 2013Q2

REPORT INFORMATION
  Report Type: Spontaneous
  Country: GB (occurrence: GB)
  Receive Date: 20130620
  Receipt Date: 20130620
  Transmission Date: 20140414
  Serious: Yes (Other)
  Sender: FDA-Public Use
  Company Number: GB-MYLANLABS-2013S1012617

PATIENT
  Sex: Female

DRUGS (6)
  1. AMLODIPINE [Suspect]
     Indication: HYPERTENSION
  2. AZITHROMYCIN [Suspect]
     Indication: PRODUCT USED FOR UNKNOWN INDICATION
  3. BENDROFLUMETHIAZIDE [Suspect]
     Indication: HYPERTENSION
  4. CARBOCISTEINE [Suspect]
     Indication: PRODUCT USED FOR UNKNOWN INDICATION
  5. DOXYCYCLINE [Suspect]
     Indication: PRODUCT USED FOR UNKNOWN INDICATION
  6. SALBUTAMOL [Suspect]
     Indication: PRODUCT USED FOR UNKNOWN INDICATION

REACTIONS (3)
  - Drug interaction [Unknown]
  - Bronchiectasis [Unknown]
  - Condition aggravated [Unknown]
